FAERS Safety Report 5876295-4 (Version None)
Quarter: 2008Q3

REPORT INFORMATION
  Report Type: 
  Country: None (occurrence: None)
  Receive Date: 20080910
  Receipt Date: 20080903
  Transmission Date: 20090109
  Serious: Yes (Other)
  Sender: FDA-Public Use
  Company Number: US-BAYER-200813356BCC

PATIENT
  Age: 17 Year
  Sex: Female
  Weight: 43 kg

DRUGS (1)
  1. MIDOL [Suspect]
     Indication: SELF INJURIOUS BEHAVIOUR
     Dosage: TOTAL DAILY DOSE: 10 DF  UNIT DOSE: 1 DF
     Route: 048
     Dates: start: 20080811

REACTIONS (2)
  - DRUG TOXICITY [None]
  - VOMITING [None]
